FAERS Safety Report 8310115-3 (Version None)
Quarter: 2012Q2

REPORT INFORMATION
  Report Type: 
  Country: None (occurrence: None)
  Receive Date: 20120425
  Receipt Date: 20120417
  Transmission Date: 20120825
  Serious: Yes (Hospitalization)
  Sender: FDA-Public Use
  Company Number: US-BAYER-2011-116681

PATIENT
  Age: 46 Year
  Sex: Female

DRUGS (11)
  1. PROVIGIL [Concomitant]
     Dosage: 200 MG, UNK
     Route: 048
     Dates: start: 20100420, end: 20100507
  2. AZITHROMYCIN [Concomitant]
     Indication: PNEUMONIA
     Dosage: UNK
     Route: 048
     Dates: start: 20100601
  3. MOTRIN [Concomitant]
     Dosage: UNK UNK, PRN
     Dates: start: 20100601
  4. DROSPIRENONE AND ETHINYL ESTRADIOL [Suspect]
     Dosage: UNK
     Dates: start: 20071001, end: 20100601
  5. ADDERALL 5 [Concomitant]
     Dosage: UNK
     Dates: start: 20100601
  6. YASMIN [Suspect]
     Dosage: UNK
     Dates: start: 20071001, end: 20100601
  7. HYDROCODONE BITARTRATE AND ACETAMINOPHEN [Concomitant]
     Dosage: UNK
     Route: 048
     Dates: start: 20100623
  8. YAZ [Suspect]
     Dosage: UNK
     Dates: start: 20071001, end: 20100601
  9. AMPHETAMINE AND DEXTROAMPHETAMINE SALTS [Concomitant]
     Dosage: 20 MG, UNK
     Route: 048
     Dates: start: 20100524
  10. IBUPROFEN [Concomitant]
     Dosage: 800 MG, UNK
     Route: 048
     Dates: start: 20100623
  11. IBUPROFEN [Concomitant]
     Dosage: 400 MG, UNK
     Dates: start: 20100623

REACTIONS (3)
  - PULMONARY EMBOLISM [None]
  - PAIN [None]
  - INJURY [None]
